FAERS Safety Report 4746576-6 (Version None)
Quarter: 2005Q3

REPORT INFORMATION
  Report Type: 
  Country: None (occurrence: None)
  Receive Date: 20050817
  Receipt Date: 20050805
  Transmission Date: 20060218
  Serious: Yes (Congenital Anomaly)
  Sender: FDA-Public Use
  Company Number: US-BRISTOL-MYERS SQUIBB COMPANY-13070198

PATIENT
  Age: 1 Day
  Sex: Male
  Weight: 3 kg

DRUGS (3)
  1. ZERIT [Suspect]
     Dosage: THERAPY STARTED GESTATIONAL WEEK 8.
     Route: 064
     Dates: start: 20030121
  2. EPIVIR [Suspect]
     Dosage: THERAPY STARTED GESTATIONAL WEEK 8.
     Route: 064
     Dates: start: 20030121
  3. VIRACEPT [Suspect]
     Dosage: THERAPY STARTED GESTATIONAL WEEK 8.
     Route: 064
     Dates: start: 20030121

REACTIONS (2)
  - CONGENITAL HAND MALFORMATION [None]
  - PREGNANCY [None]
